FAERS Safety Report 19483258 (Version 3)
Quarter: 2022Q1

REPORT INFORMATION
  Report Type: Spontaneous
  Country: US (occurrence: US)
  Receive Date: 20210701
  Receipt Date: 20220202
  Transmission Date: 20220423
  Serious: Yes (Life-Threatening, Hospitalization)
  Sender: FDA-Public Use
  Company Number: US-TEVA-2021-US-1927377

PATIENT
  Age: 52 Year
  Sex: Female

DRUGS (6)
  1. FILGRASTIM [Suspect]
     Active Substance: FILGRASTIM
     Indication: Febrile neutropenia
     Dosage: 480 MICROGRAM DAILY;
     Route: 058
  2. FLUOROURACIL [Suspect]
     Active Substance: FLUOROURACIL
     Indication: Colon cancer
     Dosage: FLUOROURACIL GIVEN OVER 15MIN; AS PER THE MODIFIED FOLFOX REGIMEN
     Route: 042
  3. FLUOROURACIL [Suspect]
     Active Substance: FLUOROURACIL
     Dosage: FOLLOWED BY FLUOROURACIL GIVEN OVER 46 HOURS ON DAY 1, AND REPEATED EVERY 14 DAYS FOR A TOTAL OF ...
     Route: 042
  4. OXALIPLATIN [Concomitant]
     Active Substance: OXALIPLATIN
     Indication: Colon cancer
     Dosage: GIVEN OVER 2 HOURS ON DAY 1, AND REPEATED EVERY 14 DAYS FOR A TOTAL OF 12 CYCLES; AS PER THE MODI...
     Route: 042
  5. OXALIPLATIN [Concomitant]
     Active Substance: OXALIPLATIN
     Dosage: ON DAY 1, AND REPEATED EVERY 14 DAYS FOR A TOTAL OF 12 CYCLES; AS PER THE MODIFIED FOLFOX REGIMEN
     Route: 042
  6. LEUCOVORIN [Concomitant]
     Active Substance: LEUCOVORIN
     Indication: Colon cancer
     Dosage: GIVEN OVER 2 HOURS ON DAY 1, AND REPEATED EVERY 14 DAYS FOR A TOTAL OF 12 CYCLES; AS PER THE MODI...
     Route: 042

REACTIONS (10)
  - Chills [Recovered/Resolved]
  - Stomatitis [Recovered/Resolved]
  - Diarrhoea [Recovered/Resolved]
  - Nausea [Recovered/Resolved]
  - Vomiting [Recovered/Resolved]
  - Dysphagia [Recovered/Resolved]
  - Stomatitis [Recovered/Resolved]
  - Febrile neutropenia [Recovered/Resolved]
  - Toxicity to various agents [Unknown]
  - Drug ineffective [Unknown]
